FAERS Safety Report 4861530-1 (Version None)
Quarter: 2005Q4

REPORT INFORMATION
  Report Type: 
  Country: None (occurrence: None)
  Receive Date: 20051220
  Receipt Date: 20051208
  Transmission Date: 20060501
  Serious: Yes (Other)
  Sender: FDA-Public Use
  Company Number: PHBS2005ZA18249

PATIENT
  Age: 39 Year
  Sex: Female

DRUGS (3)
  1. ZELNORM [Suspect]
     Indication: IRRITABLE BOWEL SYNDROME
     Dosage: 12 MG/DAY
     Route: 048
     Dates: start: 20050901
  2. SCHERIPROCT SUPPOSITORIES [Concomitant]
     Indication: RECTAL ULCER
  3. DULCOLAX [Concomitant]
     Indication: CONSTIPATION

REACTIONS (6)
  - DISCOMFORT [None]
  - DIVERTICULUM INTESTINAL [None]
  - DOLICHOCOLON [None]
  - GASTROINTESTINAL MOTILITY DISORDER [None]
  - LARGE INTESTINAL ULCER [None]
  - MALAISE [None]
